FAERS Safety Report 9624776 (Version 1)
Quarter: 2013Q4

REPORT INFORMATION
  Report Type: Spontaneous
  Country: US (occurrence: US)
  Receive Date: 20131015
  Receipt Date: 20131015
  Transmission Date: 20140711
  Serious: No
  Sender: FDA-Public Use
  Company Number: US-009507513-1310USA005416

PATIENT
  Sex: Female

DRUGS (1)
  1. MIRALAX [Suspect]
     Indication: CONSTIPATION
     Dosage: 17 G, TID
     Route: 048

REACTIONS (4)
  - Overdose [Unknown]
  - Incorrect drug administration duration [Unknown]
  - Off label use [Unknown]
  - Product odour abnormal [Unknown]
